FAERS Safety Report 7896321-0 (Version None)
Quarter: 2011Q4

REPORT INFORMATION
  Report Type: 
  Country: None (occurrence: None)
  Receive Date: 20111106
  Receipt Date: 20110908
  Transmission Date: 20120403
  Serious: No
  Sender: FDA-Public Use
  Company Number: US-AMGEN-USASP2011046018

PATIENT
  Age: 49 Year
  Sex: Female
  Weight: 61.678 kg

DRUGS (1)
  1. ENBREL [Suspect]
     Indication: PSORIATIC ARTHROPATHY
     Dosage: 25 MG, 2 TIMES/WK
     Dates: start: 19990908, end: 20030531

REACTIONS (2)
  - INJECTION SITE URTICARIA [None]
  - URTICARIA [None]
